FAERS Safety Report 8607380-1 (Version None)
Quarter: 2012Q3

REPORT INFORMATION
  Report Type: 
  Country: None (occurrence: None)
  Receive Date: 20120821
  Receipt Date: 20120817
  Transmission Date: 20120928
  Serious: No
  Sender: FDA-Public Use
  Company Number: US-PFIZER INC-2012203136

PATIENT
  Age: 39 Year
  Sex: Male
  Weight: 87.075 kg

DRUGS (3)
  1. CHANTIX [Suspect]
     Indication: SMOKING CESSATION THERAPY
     Dosage: 0.5 MG, DAILY
     Dates: start: 20120808, end: 20120801
  2. CHANTIX [Suspect]
     Dosage: UNK
     Dates: start: 20120801
  3. CHANTIX [Suspect]
     Dosage: 1 MG, 2X/DAY
     Dates: start: 20120801, end: 20120801

REACTIONS (5)
  - MIDDLE INSOMNIA [None]
  - DYSGEUSIA [None]
  - MOOD SWINGS [None]
  - FEELING ABNORMAL [None]
  - SOMNOLENCE [None]
